FAERS Safety Report 25377410 (Version 2)
Quarter: 2025Q2

REPORT INFORMATION
  Report Type: Spontaneous
  Country: US (occurrence: US)
  Receive Date: 20250530
  Receipt Date: 20250602
  Transmission Date: 20250717
  Serious: Yes (Hospitalization, Disabling, Other)
  Sender: BOEHRINGER INGELHEIM
  Company Number: US-Komodo Health-a23aa000007q879AAA

PATIENT
  Age: 65 Year
  Sex: Female

DRUGS (3)
  1. SPIRIVA [Suspect]
     Active Substance: TIOTROPIUM BROMIDE MONOHYDRATE
     Indication: Product used for unknown indication
  2. ATROVENT HFA [Suspect]
     Active Substance: IPRATROPIUM BROMIDE
     Indication: Product used for unknown indication
  3. TIOTROPIUM [Suspect]
     Active Substance: TIOTROPIUM
     Indication: Product used for unknown indication

REACTIONS (4)
  - Thrombotic stroke [Recovered/Resolved with Sequelae]
  - Acquired cardiac septal defect [Recovered/Resolved]
  - Impaired driving ability [Not Recovered/Not Resolved]
  - Amnesia [Not Recovered/Not Resolved]

NARRATIVE: CASE EVENT DATE: 20240501
